FAERS Safety Report 8608113 (Version 2)
Quarter: 2013Q4

REPORT INFORMATION
  Report Type: Spontaneous
  Country: US (occurrence: US)
  Receive Date: 20120611
  Receipt Date: 20131219
  Transmission Date: 20140711
  Serious: Yes (Other)
  Sender: FDA-Public Use
  Company Number: US-ASTRAZENECA-2012SE35145

PATIENT
  Age: 67 Year
  Sex: Female
  Weight: 54.4 kg

DRUGS (17)
  1. NEXIUM [Suspect]
     Indication: GASTROOESOPHAGEAL REFLUX DISEASE
     Route: 048
     Dates: start: 2006, end: 2012
  2. NEXIUM [Suspect]
     Indication: GASTROOESOPHAGEAL REFLUX DISEASE
     Route: 048
     Dates: start: 20070601
  3. NEXIUM [Suspect]
     Indication: GASTROOESOPHAGEAL REFLUX DISEASE
     Route: 048
     Dates: start: 20090201
  4. PRILOSEC [Suspect]
     Indication: GASTROOESOPHAGEAL REFLUX DISEASE
     Route: 048
     Dates: start: 2013
  5. TUMS [Concomitant]
  6. PEPTO BISMOL [Concomitant]
  7. ROLAIDS [Concomitant]
     Dosage: AS NEEDED
  8. CITALOPRAM/CITALOPRAM HYDROCHLORIDE [Concomitant]
     Indication: HOT FLUSH
     Dates: start: 201112
  9. HYDROCHLOROTHIAZIDE [Concomitant]
     Indication: THYROID DISORDER
  10. LIPITOR [Concomitant]
     Indication: BLOOD CHOLESTEROL ABNORMAL
  11. SYNTHROID [Concomitant]
     Indication: THYROID DISORDER
  12. CINNAMON OTC [Concomitant]
  13. OTC POTASSIUM [Concomitant]
  14. SIMVASTATIN [Concomitant]
     Route: 048
     Dates: start: 201112
  15. ARIMIDEX [Concomitant]
     Route: 048
     Dates: start: 201112
  16. MECLIZINE HCL [Concomitant]
     Route: 048
     Dates: start: 201112
  17. TRIAMTERENE [Concomitant]
     Dates: start: 20070521

REACTIONS (5)
  - Breast cancer [Unknown]
  - Osteoporosis [Unknown]
  - Multiple fractures [Unknown]
  - Osteopenia [Unknown]
  - Type 2 diabetes mellitus [Unknown]
